FAERS Safety Report 7114601-3 (Version None)
Quarter: 2010Q4

REPORT INFORMATION
  Report Type: 
  Country: None (occurrence: None)
  Receive Date: 20101121
  Receipt Date: 20101116
  Transmission Date: 20110411
  Serious: Yes (Hospitalization)
  Sender: FDA-Public Use
  Company Number: JP-MYLANLABS-2010S1020708

PATIENT
  Age: 10 Year
  Sex: Male
  Weight: 18 kg

DRUGS (2)
  1. PHENYTOIN [Suspect]
     Indication: CONVULSION
     Route: 048
  2. PHENYTOIN [Suspect]
     Route: 048

REACTIONS (4)
  - DRUG DISPENSING ERROR [None]
  - DRUG TOXICITY [None]
  - OVERDOSE [None]
  - PURPLE GLOVE SYNDROME [None]
